FAERS Safety Report 5265348-X (Version None)
Quarter: 2007Q1

REPORT INFORMATION
  Report Type: 
  Country: None (occurrence: None)
  Receive Date: 20070314
  Receipt Date: 20070307
  Transmission Date: 20070707
  Serious: Yes (Other)
  Sender: FDA-Public Use
  Company Number: US-ROXANE LABORATORIES, INC-2007-BP-03219RO

PATIENT
  Age: 63 Year
  Sex: Male

DRUGS (2)
  1. HYDROMORPHONE HCL [Suspect]
     Indication: PAIN
     Route: 037
  2. BUPIVACAINE [Suspect]
     Indication: PAIN
     Route: 037

REACTIONS (7)
  - FAECAL INCONTINENCE [None]
  - GAIT DISTURBANCE [None]
  - MYELOPATHY [None]
  - PAIN [None]
  - PARAPARESIS [None]
  - PLEOCYTOSIS [None]
  - URINARY INCONTINENCE [None]
